FAERS Safety Report 6183291-9 (Version None)
Quarter: 2009Q2

REPORT INFORMATION
  Report Type: 
  Country: None (occurrence: None)
  Receive Date: 20090507
  Receipt Date: 20090430
  Transmission Date: 20091009
  Serious: Yes (Other)
  Sender: FDA-Public Use
  Company Number: GB-B.I. PHARMACEUTICALS,INC./RIDGEFIELD-2009-DE-03521GD

PATIENT
  Age: 40 Year
  Sex: Male

DRUGS (10)
  1. NEVIRAPINE [Suspect]
     Indication: HIV INFECTION
  2. ZIDOVUDINE [Suspect]
     Indication: HIV INFECTION
  3. DIDANOSINE [Suspect]
     Indication: HIV INFECTION
  4. STAVUDINE [Suspect]
     Indication: HIV INFECTION
  5. LAMIVUDINE [Suspect]
     Indication: HIV INFECTION
  6. ATAZANAVIR SULFATE [Suspect]
     Indication: HIV INFECTION
  7. RITONAVIR [Suspect]
     Indication: HIV INFECTION
     Dosage: BOOSTED DOSAGE
  8. SAQUINAVIR [Suspect]
     Indication: HIV INFECTION
  9. NELFINAVIR [Suspect]
     Indication: HIV INFECTION
  10. INDINIVIR SULFATE [Suspect]
     Indication: HIV INFECTION

REACTIONS (3)
  - HEPATIC FIBROSIS [None]
  - LIVER DISORDER [None]
  - NODULAR REGENERATIVE HYPERPLASIA [None]
